FAERS Safety Report 4783158-4 (Version None)
Quarter: 2005Q3

REPORT INFORMATION
  Report Type: 
  Country: None (occurrence: None)
  Receive Date: 20050929
  Receipt Date: 20050830
  Transmission Date: 20060218
  Serious: Yes (Life-Threatening, Disabling, Other)
  Sender: FDA-Public Use
  Company Number: US-GLAXOSMITHKLINE-A0572399A

PATIENT
  Age: 56 Year
  Sex: Female

DRUGS (5)
  1. WELLBUTRIN [Suspect]
     Indication: DEPRESSION
     Dosage: 150MG THREE TIMES PER DAY
     Route: 048
  2. GEODON [Concomitant]
  3. SONATA [Concomitant]
  4. LORAZEPAM [Concomitant]
  5. TYLENOL (CAPLET) [Concomitant]

REACTIONS (2)
  - COLON CANCER METASTATIC [None]
  - HEPATIC FUNCTION ABNORMAL [None]
